FAERS Safety Report 20752921 (Version 1)
Quarter: 2022Q2

REPORT INFORMATION
  Report Type: Spontaneous
  Country: US (occurrence: None)
  Receive Date: 20220426
  Receipt Date: 20220426
  Transmission Date: 20220721
  Serious: No
  Sender: FDA-Public Use
  Company Number: US-ROCHE-2932111

PATIENT
  Sex: Female

DRUGS (1)
  1. ESBRIET [Suspect]
     Active Substance: PIRFENIDONE
     Indication: Idiopathic pulmonary fibrosis
     Dosage: 1 TAB TID FOR 7 DAYS, THEN 2 TABS TID FOR 7 DAYS THEN 3 TABS TID THEREAFTER
     Route: 048
     Dates: start: 202109, end: 20211001

REACTIONS (8)
  - Headache [Unknown]
  - Dizziness [Unknown]
  - Eructation [Unknown]
  - Abdominal distension [Unknown]
  - Heart rate increased [Unknown]
  - Fatigue [Unknown]
  - Decreased appetite [Unknown]
  - Anxiety [Unknown]
